FAERS Safety Report 13217221 (Version 4)
Quarter: 2017Q3

REPORT INFORMATION
  Report Type: Spontaneous
  Country: GB (occurrence: GB)
  Receive Date: 20170210
  Receipt Date: 20170726
  Transmission Date: 20171127
  Serious: Yes (Hospitalization, Other)
  Sender: FDA-Public Use
  Company Number: GB-009507513-1702GBR003067

PATIENT
  Age: 76 Year
  Sex: Male
  Weight: 71 kg

DRUGS (27)
  1. LOVENOX [Concomitant]
     Active Substance: ENOXAPARIN SODIUM
     Indication: EMBOLISM
     Dosage: DAILY DOSE: 200 MILLIGRAM (100 MG,2 IN 1 D)
     Route: 058
     Dates: start: 20160819
  2. SYSTANE (HYPROMELLOSE 2910 (4000 MPA.S)) [Concomitant]
     Active Substance: HYPROMELLOSE 2910 (4000 MPA.S)
     Indication: FLOPPY EYELID SYNDROME
     Dosage: DAILY DOSE: 1 DOSE (UNKNOWN, 1 IN 1 D)
     Route: 047
     Dates: start: 2011
  3. FUROSEMIDE. [Concomitant]
     Active Substance: FUROSEMIDE
     Indication: DYSPNOEA
     Dosage: DAILY DOSE: 20 MILLIGRAM (20 MG,1 IN 1 D)
     Route: 048
     Dates: start: 20160805
  4. PROBIOTICS (UNSPECIFIED) [Concomitant]
     Active Substance: PROBIOTICS NOS
  5. REVLIMID [Suspect]
     Active Substance: LENALIDOMIDE
     Indication: PLASMA CELL MYELOMA
     Dosage: DAILY DOSE: UNKNOWN (25 MG)
     Route: 048
     Dates: start: 20160818, end: 20170111
  6. REVLIMID [Suspect]
     Active Substance: LENALIDOMIDE
     Dosage: UNK
     Route: 048
     Dates: start: 20170119
  7. AMLODIPINE [Concomitant]
     Active Substance: AMLODIPINE BESYLATE
     Indication: HYPERTENSION
     Dosage: 2.5 MILLIGRAM (2.5MG, 1 IN 1 D)
     Route: 048
     Dates: start: 2014
  8. ACETAMINOPHEN. [Concomitant]
     Active Substance: ACETAMINOPHEN
     Indication: BACK PAIN
     Dosage: UNK (GIVEN AS PARACETAMOL)
     Route: 065
  9. DEXAMETHASONE. [Suspect]
     Active Substance: DEXAMETHASONE
     Dosage: 20 MG,1 IN 1 WK
     Route: 065
     Dates: start: 20170119
  10. MIRALAX [Concomitant]
     Active Substance: POLYETHYLENE GLYCOL 3350
     Indication: PROPHYLAXIS
     Dosage: DAILY DOSE: UNKNOWN (17 G)
     Route: 048
     Dates: start: 20160803
  11. NITROSTAT [Concomitant]
     Active Substance: NITROGLYCERIN
     Indication: CHEST PAIN
     Dosage: 0.4 MG, UNK
     Route: 060
  12. DARATUMUMAB [Suspect]
     Active Substance: DARATUMUMAB
     Dosage: UNKNOWN
     Route: 042
     Dates: start: 20170119
  13. ACYCLOVIR. [Concomitant]
     Active Substance: ACYCLOVIR
     Indication: PROPHYLAXIS
     Dosage: DAILY DOSE: 800 MILLIGRAM (400 MG,2 IN 1 D)
     Route: 048
     Dates: start: 20160816
  14. SULFAMETHOXAZOLE [Concomitant]
     Active Substance: SULFAMETHOXAZOLE
     Indication: PROPHYLAXIS
     Dosage: DAILY DOSE: 400 MILLIGRAM (400 MG,1 IN 1 D)
     Route: 048
     Dates: start: 20160816
  15. OMNICEF [Concomitant]
     Active Substance: CEFDINIR
     Indication: PRODUCT USED FOR UNKNOWN INDICATION
     Dosage: 300 MG,
     Route: 048
  16. BACTRIM [Concomitant]
     Active Substance: SULFAMETHOXAZOLE\TRIMETHOPRIM
     Indication: PNEUMOCYSTIS JIROVECII PNEUMONIA
     Dosage: UNK
     Route: 048
  17. ZOLEDRONIC ACID [Concomitant]
     Active Substance: ZOLEDRONIC ACID
     Indication: PROPHYLAXIS
     Dosage: DAILY DOSE: UNKNOWN (4 MG, 1 IN 1 M)
     Route: 041
     Dates: start: 20161013
  18. DEXAMETHASONE. [Suspect]
     Active Substance: DEXAMETHASONE
     Indication: PLASMA CELL MYELOMA
     Dosage: 20 MG,1 IN 1 WK
     Route: 065
     Dates: start: 20160818
  19. CALCIUM D3 [Concomitant]
     Active Substance: CALCIUM\CHOLECALCIFEROL
     Indication: PROPHYLAXIS
     Dosage: DAILY DOSE: UNKNOWN (500 MG)
     Route: 048
     Dates: start: 20160819
  20. DARATUMUMAB [Suspect]
     Active Substance: DARATUMUMAB
     Indication: PLASMA CELL MYELOMA
     Dosage: DAILY DOSE: UNKNOWN (1584 MG)
     Route: 041
     Dates: start: 20160818
  21. LOVENOX [Concomitant]
     Active Substance: ENOXAPARIN SODIUM
     Dosage: DAILY DOSE: 200 MILLIGRAM (100 MG,2 IN 1 D)
     Route: 058
     Dates: start: 20160930
  22. ZOLOFT [Concomitant]
     Active Substance: SERTRALINE HYDROCHLORIDE
     Indication: PRODUCT USED FOR UNKNOWN INDICATION
     Dosage: 50 MG, UNK
     Route: 048
  23. COMPAZINE [Concomitant]
     Active Substance: PROCHLORPERAZINE MALEATE
     Indication: PROPHYLAXIS
     Dosage: DAILY DOSE: UNKNOWN (10 MG)
     Route: 048
     Dates: start: 20160816
  24. TYLENOL [Concomitant]
     Active Substance: ACETAMINOPHEN
     Indication: BACK PAIN
     Dosage: DAILY DOSE: UNKNOWN (500 MG)
     Route: 048
     Dates: start: 20160805
  25. FENTANYL. [Concomitant]
     Active Substance: FENTANYL
     Indication: BACK PAIN
     Dosage: DAILY DOSE: 25 MCG (UNKNOWN)
     Route: 061
     Dates: start: 20160825
  26. METOPROLOL. [Concomitant]
     Active Substance: METOPROLOL
     Indication: HYPERTENSION
     Dosage: DAILY DOSE: 100 MILLIGRAM (100 MG,1 IN 1 D)
     Route: 048
     Dates: start: 2014
  27. WARFARIN [Concomitant]
     Active Substance: WARFARIN
     Indication: ATRIAL FIBRILLATION
     Dosage: UNKNOWN
     Route: 065

REACTIONS (1)
  - Pneumonia [Recovered/Resolved]

NARRATIVE: CASE EVENT DATE: 20170112
